FAERS Safety Report 7779295-2 (Version None)
Quarter: 2011Q3

REPORT INFORMATION
  Report Type: 
  Country: None (occurrence: None)
  Receive Date: 20110926
  Receipt Date: 20110915
  Transmission Date: 20111222
  Serious: Yes (Hospitalization, Other)
  Sender: FDA-Public Use
  Company Number: US-ASTRAZENECA-2011SE55486

PATIENT
  Age: 62 Year
  Sex: Male

DRUGS (13)
  1. CLOPIDOGREL [Concomitant]
  2. EPTIFIBATIDE [Concomitant]
  3. OCTREOTIDE ACETATE [Concomitant]
  4. GEFITINIB [Suspect]
     Indication: METASTATIC CARCINOID TUMOUR
     Route: 048
  5. HEPARIN [Concomitant]
  6. PANTOPRAZOLE [Concomitant]
  7. ASPIRIN [Concomitant]
  8. CLOPIDOGREL [Concomitant]
  9. IBUPROFEN [Concomitant]
     Indication: PYREXIA
     Dosage: AS REQUIRED
  10. IBUPROFEN [Concomitant]
     Indication: HEADACHE
     Dosage: AS REQUIRED
  11. PRAVASTATIN [Concomitant]
  12. OCTREOTIDE ACETATE [Concomitant]
     Dates: start: 20040101
  13. IBUPROFEN [Concomitant]
     Indication: NIGHT SWEATS
     Dosage: AS REQUIRED

REACTIONS (1)
  - MYOCARDIAL INFARCTION [None]
